FAERS Safety Report 6199610-3 (Version None)
Quarter: 2009Q2

REPORT INFORMATION
  Report Type: 
  Country: None (occurrence: None)
  Receive Date: 20090522
  Receipt Date: 20090115
  Transmission Date: 20091009
  Serious: No
  Sender: FDA-Public Use
  Company Number: A0763780A

PATIENT
  Age: 90 Year
  Sex: Female

DRUGS (2)
  1. BACTROBAN [Suspect]
     Indication: INGROWN HAIR
     Route: 061
     Dates: start: 20081112
  2. NO CONCURRENT MEDICATION [Concomitant]

REACTIONS (3)
  - APPLICATION SITE BLEEDING [None]
  - THERAPEUTIC RESPONSE UNEXPECTED [None]
  - URTICARIA [None]
